FAERS Safety Report 15332690 (Version 2)
Quarter: 2018Q3

REPORT INFORMATION
  Report Type: Spontaneous
  Country: FR (occurrence: FR)
  Receive Date: 20180830
  Receipt Date: 20180912
  Transmission Date: 20181010
  Serious: Yes (Other)
  Sender: FDA-Public Use
  Company Number: FR-SUN PHARMACEUTICAL INDUSTRIES LTD-2018RR-169961

PATIENT
  Age: 20 Year
  Sex: Female

DRUGS (2)
  1. RISPERIDONE. [Suspect]
     Active Substance: RISPERIDONE
     Indication: AUTISM SPECTRUM DISORDER
     Route: 065
  2. ARIPIPRAZOLE. [Suspect]
     Active Substance: ARIPIPRAZOLE
     Indication: NEURODEVELOPMENTAL DISORDER
     Dosage: 10 MG, QD
     Route: 065

REACTIONS (7)
  - Intentional self-injury [Unknown]
  - Drug interaction [Unknown]
  - Agitation [Unknown]
  - Aggression [Unknown]
  - Scar [Unknown]
  - Anxiety [Unknown]
  - Product use in unapproved indication [Unknown]
